FAERS Safety Report 14598999 (Version 1)
Quarter: 2018Q1

REPORT INFORMATION
  Report Type: Report from Study
  Country: US (occurrence: US)
  Receive Date: 20180305
  Receipt Date: 20180305
  Transmission Date: 20180509
  Serious: Yes (Other)
  Sender: FDA-Public Use
  Company Number: US-JNJFOC-20180134054

PATIENT
  Age: 63 Year
  Sex: Male

DRUGS (10)
  1. CURCUMIN [Concomitant]
     Active Substance: CURCUMIN
  2. KLONOPIN [Concomitant]
     Active Substance: CLONAZEPAM
  3. SIMVASTATIN. [Concomitant]
     Active Substance: SIMVASTATIN
  4. IMBRUVICA [Suspect]
     Active Substance: IBRUTINIB
     Indication: CHRONIC LYMPHOCYTIC LEUKAEMIA
     Route: 048
     Dates: start: 20170115
  5. BYDUREON [Concomitant]
     Active Substance: EXENATIDE
  6. INVOKANA [Concomitant]
     Active Substance: CANAGLIFLOZIN
  7. WELLBUTRIN [Concomitant]
     Active Substance: BUPROPION HYDROCHLORIDE
  8. GLIMEPIRIDE. [Concomitant]
     Active Substance: GLIMEPIRIDE
  9. VITAMIN C [Concomitant]
     Active Substance: ASCORBIC ACID
  10. ATORVASTATIN [Concomitant]
     Active Substance: ATORVASTATIN

REACTIONS (3)
  - Post procedural swelling [Recovered/Resolved]
  - Post procedural contusion [Recovered/Resolved]
  - Penile prosthesis insertion [Recovered/Resolved]

NARRATIVE: CASE EVENT DATE: 20180111
